FAERS Safety Report 5035196-4 (Version None)
Quarter: 2006Q2

REPORT INFORMATION
  Report Type: 
  Country: None (occurrence: None)
  Receive Date: 20060522
  Receipt Date: 20050412
  Transmission Date: 20061013
  Serious: Yes (Other)
  Sender: FDA-Public Use
  Company Number: PHEH2005US01001

PATIENT
  Age: 36 Year
  Sex: Male

DRUGS (5)
  1. TEGRETOL-XR [Suspect]
     Indication: CONVULSION
     Dosage: 400 MG,BID,ORAL
     Route: 048
     Dates: start: 20050111, end: 20050127
  2. TOPAMAX [Concomitant]
  3. PRAVACHOL [Concomitant]
  4. SYNTHROID [Concomitant]
  5. ASA (ACETYLSALICYCLIC ACID) [Concomitant]

REACTIONS (4)
  - CONVULSION [None]
  - HYPOAESTHESIA [None]
  - HYPONATRAEMIA [None]
  - PARAESTHESIA [None]
